FAERS Safety Report 5974809-7 (Version None)
Quarter: 2008Q4

REPORT INFORMATION
  Report Type: 
  Country: None (occurrence: None)
  Receive Date: 20081201
  Receipt Date: 20081126
  Transmission Date: 20090506
  Serious: Yes (Other)
  Sender: FDA-Public Use
  Company Number: US-PFIZER INC-2008100601

PATIENT
  Sex: Female
  Weight: 52 kg

DRUGS (9)
  1. AROMASIN [Suspect]
     Indication: BREAST CANCER
     Route: 048
     Dates: start: 20070701
  2. ACTONEL [Concomitant]
  3. LAMICTAL [Concomitant]
  4. WELLBUTRIN [Concomitant]
  5. ADDERALL 10 [Concomitant]
  6. NEXIUM [Concomitant]
  7. AMBIEN [Concomitant]
  8. GABAPENTIN [Concomitant]
  9. CALCIUM W/MAGNESIUM [Concomitant]

REACTIONS (2)
  - BONE DENSITY DECREASED [None]
  - TENDONITIS [None]
